FAERS Safety Report 22615987 (Version 1)
Quarter: 2023Q2

REPORT INFORMATION
  Report Type: Report from Study
  Country: CO (occurrence: CO)
  Receive Date: 20230619
  Receipt Date: 20230619
  Transmission Date: 20230721
  Serious: Yes (Hospitalization, Other)
  Sender: FDA-Public Use
  Company Number: CO-ABBVIE-5294112

PATIENT
  Sex: Female

DRUGS (6)
  1. ZEMPLAR [Suspect]
     Active Substance: PARICALCITOL
     Indication: Chronic kidney disease
     Route: 042
     Dates: start: 20190510, end: 20221010
  2. AMLODIPINE [Concomitant]
     Active Substance: AMLODIPINE BESYLATE
     Indication: Hypertension
     Route: 048
  3. LOSARTAN [Concomitant]
     Active Substance: LOSARTAN
     Indication: Hypertension
     Dosage: NOT REPORTED
     Route: 048
  4. MINOXIDIL [Concomitant]
     Active Substance: MINOXIDIL
     Indication: Hypertension
     Route: 048
  5. CLONIDINE [Concomitant]
     Active Substance: CLONIDINE
     Indication: Hypertension
     Route: 048
  6. Prazosina [Concomitant]
     Indication: Hypertension
     Route: 048

REACTIONS (9)
  - Respiratory disorder [Recovering/Resolving]
  - Asthenia [Recovering/Resolving]
  - Haemorrhage [Recovering/Resolving]
  - Dyspnoea [Recovering/Resolving]
  - Venous occlusion [Recovering/Resolving]
  - Haemoglobin abnormal [Recovering/Resolving]
  - Cardiovascular disorder [Recovering/Resolving]
  - Pulmonary oedema [Recovering/Resolving]
  - Discouragement [Recovering/Resolving]

NARRATIVE: CASE EVENT DATE: 20230101
